FAERS Safety Report 10103424 (Version 2)
Quarter: 2014Q2

REPORT INFORMATION
  Report Type: Other
  Country: US (occurrence: US)
  Receive Date: 20140424
  Receipt Date: 20140625
  Transmission Date: 20141212
  Serious: Yes (Hospitalization, Other)
  Sender: FDA-Public Use
  Company Number: US-GSKPPD-2014GSK000106

PATIENT
  Age: 59 Year
  Sex: Male

DRUGS (11)
  1. AVANDIA [Suspect]
     Indication: DIABETES MELLITUS
     Route: 048
     Dates: start: 20050331, end: 20080607
  2. ZESTRIL [Concomitant]
  3. LISINOPRIL [Concomitant]
     Route: 048
  4. LIPITOR [Concomitant]
  5. HYDROCHLOROTHIAZIDE [Concomitant]
  6. METOPROLOL [Concomitant]
  7. ASPIRIN [Concomitant]
  8. LOVASTATIN [Concomitant]
  9. NITROQUICK [Concomitant]
  10. VYTORIN [Concomitant]
  11. SIMVASTATIN [Concomitant]

REACTIONS (2)
  - Myocardial infarction [None]
  - Angina pectoris [Recovered/Resolved]
